FAERS Safety Report 22192031 (Version 2)
Quarter: 2023Q2

REPORT INFORMATION
  Report Type: Spontaneous
  Country: JP (occurrence: JP)
  Receive Date: 20230410
  Receipt Date: 20230428
  Transmission Date: 20230722
  Serious: Yes (Hospitalization, Other)
  Sender: FDA-Public Use
  Company Number: JP-KYOWAKIRIN-2023AKK005028

PATIENT
  Age: 9 Decade
  Sex: Female

DRUGS (6)
  1. ISTRADEFYLLINE [Suspect]
     Active Substance: ISTRADEFYLLINE
     Indication: Parkinson^s disease
     Dosage: 20 MG
     Route: 048
     Dates: start: 202101, end: 202110
  2. ROPINIROLE HYDROCHLORIDE [Suspect]
     Active Substance: ROPINIROLE HYDROCHLORIDE
     Indication: Parkinson^s disease
     Dosage: 8 MG, QD
     Route: 062
     Dates: start: 202302
  3. ROPINIROLE HYDROCHLORIDE [Suspect]
     Active Substance: ROPINIROLE HYDROCHLORIDE
     Dosage: 16 MG, QD
     Route: 062
     Dates: start: 202303
  4. CARBIDOPA AND LEVODOPA [Concomitant]
     Active Substance: CARBIDOPA\LEVODOPA
     Indication: Parkinson^s disease
     Dosage: 300 MG
     Route: 065
     Dates: start: 2018
  5. SELEGILINE HYDROCHLORIDE [Concomitant]
     Active Substance: SELEGILINE HYDROCHLORIDE
     Indication: Parkinson^s disease
     Dosage: UNK
     Route: 065
     Dates: start: 201904
  6. ROTIGOTINE [Concomitant]
     Active Substance: ROTIGOTINE
     Indication: Parkinson^s disease
     Dosage: UNK
     Route: 065
     Dates: start: 202106

REACTIONS (5)
  - Dementia [Not Recovered/Not Resolved]
  - Spinal compression fracture [Recovered/Resolved]
  - Hallucination [Recovered/Resolved]
  - Camptocormia [Recovering/Resolving]
  - Somnolence [Unknown]

NARRATIVE: CASE EVENT DATE: 20210601
